FAERS Safety Report 19756120 (Version 1)
Quarter: 2021Q3

REPORT INFORMATION
  Report Type: Spontaneous
  Country: IR (occurrence: IR)
  Receive Date: 20210827
  Receipt Date: 20210827
  Transmission Date: 20211014
  Serious: Yes (Death, Hospitalization)
  Sender: FDA-Public Use
  Company Number: IR-MYLANLABS-2021M1056713

PATIENT
  Age: 33 Year
  Sex: Female
  Weight: 70 kg

DRUGS (6)
  1. CHARCOAL, ACTIVATED W/SORBITOL [Concomitant]
     Indication: CHEMICAL POISONING
     Dosage: ACTIVATED CHARCOAL (50G)/SORBITOL (150 ML OF 70% SOLUTION)
     Route: 065
  2. EPINEPHRINE. [Suspect]
     Active Substance: EPINEPHRINE
     Indication: CARDIO-RESPIRATORY ARREST
     Dosage: INFUSION
  3. POTASSIUM CHLORIDE. [Concomitant]
     Active Substance: POTASSIUM CHLORIDE
     Indication: HYPOKALAEMIA
     Dosage: INFUSION
  4. EPINEPHRINE. [Suspect]
     Active Substance: EPINEPHRINE
     Indication: LABILE BLOOD PRESSURE
  5. ATROPINE. [Suspect]
     Active Substance: ATROPINE
     Indication: CHEMICAL POISONING
     Dosage: 2 MILLIGRAM
     Route: 065
  6. ATROPINE. [Suspect]
     Active Substance: ATROPINE
     Indication: CARDIO-RESPIRATORY ARREST

REACTIONS (1)
  - Drug ineffective [Fatal]
